FAERS Safety Report 6461076-3 (Version None)
Quarter: 2009Q4

REPORT INFORMATION
  Report Type: 
  Country: None (occurrence: None)
  Receive Date: 20091130
  Receipt Date: 20091123
  Transmission Date: 20100525
  Serious: Yes (Hospitalization)
  Sender: FDA-Public Use
  Company Number: B0606713A

PATIENT
  Sex: Male
  Weight: 82.5 kg

DRUGS (5)
  1. FONDAPARINUX SODIUM [Suspect]
     Indication: ATRIAL FIBRILLATION
     Dosage: 7.5MG PER DAY
     Route: 058
     Dates: start: 20091109
  2. ASPIRIN [Concomitant]
     Dosage: 100MG PER DAY
     Route: 048
  3. RAMIPRIL [Concomitant]
     Dosage: 20MG PER DAY
     Route: 048
  4. METOPROLOL [Concomitant]
     Dosage: 78.1MG PER DAY
     Route: 048
  5. CARVEDILOL [Concomitant]
     Dosage: 25MG PER DAY
     Route: 048

REACTIONS (5)
  - CARDIAC FAILURE [None]
  - DYSPNOEA [None]
  - HYPERTENSION [None]
  - PLEURAL EFFUSION [None]
  - PULMONARY CONGESTION [None]
